FAERS Safety Report 17220829 (Version 1)
Quarter: 2019Q4

REPORT INFORMATION
  Report Type: Spontaneous
  Country: US (occurrence: US)
  Receive Date: 20191231
  Receipt Date: 20191231
  Transmission Date: 20200122
  Serious: Yes (Death)
  Sender: FDA-Public Use
  Company Number: US-MALLINCKRODT-T201909112

PATIENT
  Age: 65 Year
  Sex: Male

DRUGS (1)
  1. H.P. ACTHAR [Suspect]
     Active Substance: CORTICOTROPIN
     Indication: MULTIPLE SCLEROSIS
     Dosage: 80 UNITS/ 1 ML, 1 TIME DAILY
     Route: 058
     Dates: start: 20190620

REACTIONS (1)
  - Death [Fatal]

NARRATIVE: CASE EVENT DATE: 20191212
